FAERS Safety Report 8260007-3 (Version None)
Quarter: 2012Q2

REPORT INFORMATION
  Report Type: 
  Country: None (occurrence: None)
  Receive Date: 20120404
  Receipt Date: 20120402
  Transmission Date: 20120825
  Serious: No
  Sender: FDA-Public Use
  Company Number: US-BAYER-2012-032656

PATIENT
  Sex: Female
  Weight: 120.18 kg

DRUGS (1)
  1. GADAVIST [Suspect]
     Indication: NUCLEAR MAGNETIC RESONANCE IMAGING
     Dosage: 12 ML, UNK (BUTTERFLY)
     Dates: start: 20120402, end: 20120402

REACTIONS (1)
  - VOMITING [None]
